FAERS Safety Report 25866658 (Version 1)
Quarter: 2025Q3

REPORT INFORMATION
  Report Type: Spontaneous
  Country: US (occurrence: US)
  Receive Date: 20250930
  Receipt Date: 20250930
  Transmission Date: 20251020
  Serious: No
  Sender: ABBVIE
  Company Number: US-ABBVIE-6480374

PATIENT
  Age: 65 Year
  Sex: Male
  Weight: 106 kg

DRUGS (1)
  1. DALBAVANCIN [Suspect]
     Active Substance: DALBAVANCIN
     Indication: Osteomyelitis
     Dosage: FORM STRENGTH: 1500 MILLIGRAM
     Route: 042
     Dates: start: 20250902, end: 20250902

REACTIONS (3)
  - Cold sweat [Recovering/Resolving]
  - Back pain [Recovering/Resolving]
  - Muscle spasms [Recovering/Resolving]

NARRATIVE: CASE EVENT DATE: 20250902
